FAERS Safety Report 9891227 (Version 1)
Quarter: 2014Q1

REPORT INFORMATION
  Report Type: Spontaneous
  Country: US (occurrence: None)
  Receive Date: 20140211
  Receipt Date: 20140211
  Transmission Date: 20141002
  Serious: Yes (Other)
  Sender: FDA-Public Use
  Company Number: None

PATIENT
  Age: 29 Year
  Sex: Female
  Weight: 55.79 kg

DRUGS (7)
  1. DULOXETINE [Suspect]
     Dosage: 60MG  TWO PO DAILY  PO
     Route: 048
     Dates: start: 20140130, end: 20140210
  2. DULOXETINE [Suspect]
     Indication: PANIC DISORDER WITH AGORAPHOBIA
     Dosage: 60MG  TWO PO DAILY  PO
     Route: 048
     Dates: start: 20140130, end: 20140210
  3. DULOXETINE [Suspect]
     Dosage: 60MG  TWO PO DAILY  PO
     Route: 048
     Dates: start: 20140130, end: 20140210
  4. CLONAZEPAM [Concomitant]
  5. KEPPRA [Concomitant]
  6. IMITREX [Concomitant]
  7. REGLAN [Concomitant]

REACTIONS (3)
  - Migraine [None]
  - Condition aggravated [None]
  - Product substitution issue [None]
